FAERS Safety Report 15902881 (Version 1)
Quarter: 2019Q1

REPORT INFORMATION
  Report Type: Spontaneous
  Country: GB (occurrence: GB)
  Receive Date: 20190202
  Receipt Date: 20190202
  Transmission Date: 20190417
  Serious: Yes (Hospitalization, Disabling, Other)
  Sender: FDA-Public Use
  Company Number: GB-ACCORD-104269

PATIENT
  Age: 54 Year
  Sex: Female
  Weight: 76.2 kg

DRUGS (2)
  1. TAMOXIFEN [Concomitant]
     Active Substance: TAMOXIFEN
  2. DONEPEZIL/DONEPEZIL HYDROCHLORIDE [Suspect]
     Active Substance: DONEPEZIL HYDROCHLORIDE
     Indication: EARLY ONSET FAMILIAL ALZHEIMER^S DISEASE
     Dosage: INTIALLY 5MG INCREASED TO 10MG WITHIN 2 WEEKS
     Route: 048

REACTIONS (4)
  - Brain injury [Not Recovered/Not Resolved]
  - Speech disorder [Not Recovered/Not Resolved]
  - Generalised tonic-clonic seizure [Not Recovered/Not Resolved]
  - Prosopagnosia [Not Recovered/Not Resolved]

NARRATIVE: CASE EVENT DATE: 20160915
